FAERS Safety Report 8455560-0 (Version None)
Quarter: 2012Q2

REPORT INFORMATION
  Report Type: 
  Country: None (occurrence: None)
  Receive Date: 20120621
  Receipt Date: 20120614
  Transmission Date: 20120825
  Serious: Yes (Hospitalization)
  Sender: FDA-Public Use
  Company Number: US-GILEAD-2012-0053324

PATIENT
  Sex: Female

DRUGS (18)
  1. TYLENOL (CAPLET) [Concomitant]
  2. MIRALAX                            /00754501/ [Concomitant]
  3. ALLOPURINOL [Concomitant]
  4. DIGOXIN [Concomitant]
  5. POTASSIUM ACETATE [Concomitant]
  6. LETAIRIS [Suspect]
     Indication: PULMONARY HYPERTENSION
     Dosage: 10 UNK, UNK
     Route: 048
     Dates: start: 20081212
  7. COMBIVENT [Concomitant]
  8. CALCITRIOL [Concomitant]
  9. ADCIRCA [Concomitant]
  10. SPIRONOLACTONE [Concomitant]
  11. TORSEMIDE [Concomitant]
  12. LETAIRIS [Suspect]
     Indication: HEREDITARY HAEMORRHAGIC TELANGIECTASIA
     Dosage: 5 MG, UNK
     Route: 048
     Dates: start: 20080220, end: 20081211
  13. OMEPRAZOLE [Concomitant]
  14. NORCO [Concomitant]
  15. AVASTIN [Concomitant]
  16. TOPROL-XL [Concomitant]
  17. ZAROXOLYN [Concomitant]
  18. COLACE [Concomitant]

REACTIONS (5)
  - PYREXIA [None]
  - PALPITATIONS [None]
  - FATIGUE [None]
  - CLOSTRIDIUM DIFFICILE COLITIS [None]
  - CHILLS [None]
